FAERS Safety Report 26081063 (Version 1)
Quarter: 2025Q4

REPORT INFORMATION
  Report Type: Spontaneous
  Country: GB (occurrence: GB)
  Receive Date: 20251124
  Receipt Date: 20251124
  Transmission Date: 20260118
  Serious: Yes (Hospitalization, Disabling, Other)
  Sender: HIKMA
  Company Number: GB-MLMSERVICE-20251110-PI703031-00249-10

PATIENT
  Age: 86 Year
  Sex: Female

DRUGS (12)
  1. FLUOROURACIL [Suspect]
     Active Substance: FLUOROURACIL
     Indication: Adenocarcinoma gastric stage IV
     Dosage: FOLFOX AT 75% WITHOUT A 5-FU BOLUS FROM CYCLE 5
     Route: 065
     Dates: start: 202503, end: 202506
  2. LEUCOVORIN [Suspect]
     Active Substance: LEUCOVORIN\LEUCOVORIN CALCIUM
     Indication: Adenocarcinoma gastric stage IV
     Dosage: 75% DOSE (CYCLE 5 AND CYCLE 6)
     Route: 065
     Dates: start: 202503, end: 202506
  3. OXALIPLATIN [Suspect]
     Active Substance: OXALIPLATIN
     Indication: Adenocarcinoma gastric stage IV
     Dosage: 75% DOSE (CYCLE 5 AND CYCLE 6)
     Route: 065
     Dates: start: 202503, end: 202506
  4. AMLODIPINE [Concomitant]
     Active Substance: AMLODIPINE BESYLATE
     Indication: Product used for unknown indication
     Dosage: UNKNOWN
     Route: 065
  5. BECLOMETHASONE DIPROPIONATE [Concomitant]
     Active Substance: BECLOMETHASONE DIPROPIONATE
     Indication: Product used for unknown indication
     Dosage: UNKNOWN
     Route: 065
  6. DEXAMETHASONE [Concomitant]
     Active Substance: DEXAMETHASONE
     Indication: Product used for unknown indication
     Dosage: UNKNOWN
     Route: 065
  7. DIHYDROCODEINE [Concomitant]
     Active Substance: DIHYDROCODEINE
     Indication: Product used for unknown indication
     Dosage: UNKNOWN
  8. NITROFURANTOIN [Concomitant]
     Active Substance: NITROFURANTOIN
     Indication: Urinary tract infection
     Dosage: UNKNOWN
     Route: 065
     Dates: start: 2025
  9. OMEPRAZOLE [Concomitant]
     Active Substance: OMEPRAZOLE
     Indication: Product used for unknown indication
     Dosage: UNKNOWN
     Route: 065
  10. MORPHINE SULFATE [Concomitant]
     Active Substance: MORPHINE SULFATE
     Indication: Product used for unknown indication
     Dosage: UNKNOWN
     Route: 065
  11. SENNOSIDES A AND B [Concomitant]
     Active Substance: SENNOSIDES A AND B
     Indication: Product used for unknown indication
     Dosage: UNKNOWN
     Route: 065
  12. TINZAPARIN [Concomitant]
     Active Substance: TINZAPARIN
     Indication: Pulmonary embolism
     Dosage: UNNOWN
     Route: 065

REACTIONS (3)
  - Oral candidiasis [Unknown]
  - Oesophageal candidiasis [Unknown]
  - Weight decreased [Unknown]

NARRATIVE: CASE EVENT DATE: 20250601
